FAERS Safety Report 13483251 (Version 4)
Quarter: 2017Q3

REPORT INFORMATION
  Report Type: Spontaneous
  Country: US (occurrence: US)
  Receive Date: 20170426
  Receipt Date: 20170829
  Transmission Date: 20171127
  Serious: No
  Sender: FDA-Public Use
  Company Number: PHEH2017US012185

PATIENT
  Sex: Female
  Weight: 65.76 kg

DRUGS (1)
  1. ZOFRAN [Suspect]
     Active Substance: ONDANSETRON HYDROCHLORIDE
     Indication: VOMITING IN PREGNANCY
     Dosage: UNK, PRN
     Route: 048
     Dates: start: 200111, end: 20020626

REACTIONS (4)
  - Product use in unapproved indication [Unknown]
  - Injury [Unknown]
  - Maternal exposure during pregnancy [Unknown]
  - Emotional distress [Unknown]
